FAERS Safety Report 6126663-0 (Version None)
Quarter: 2009Q1

REPORT INFORMATION
  Report Type: 
  Country: None (occurrence: None)
  Receive Date: 20090320
  Receipt Date: 20090309
  Transmission Date: 20090719
  Serious: Yes (Other)
  Sender: FDA-Public Use
  Company Number: GB-PFIZER INC-2009181522

PATIENT

DRUGS (1)
  1. CELSENTRI [Suspect]
     Route: 048

REACTIONS (1)
  - MYOPATHY [None]
